FAERS Safety Report 8052660-4 (Version None)
Quarter: 2012Q1

REPORT INFORMATION
  Report Type: 
  Country: None (occurrence: None)
  Receive Date: 20120118
  Receipt Date: 20120113
  Transmission Date: 20120608
  Serious: No
  Sender: FDA-Public Use
  Company Number: US-PFIZER INC-2012011014

PATIENT
  Sex: Female
  Weight: 62.132 kg

DRUGS (2)
  1. CHANTIX [Suspect]
     Indication: SMOKING CESSATION THERAPY
     Dosage: 0.5 MG, 1X/DAY
     Route: 048
     Dates: start: 20110901, end: 20111101
  2. DEPO-PROVERA [Concomitant]
     Dosage: UNK

REACTIONS (6)
  - DISTURBANCE IN ATTENTION [None]
  - WITHDRAWAL SYNDROME [None]
  - WEIGHT INCREASED [None]
  - TREMOR [None]
  - RESTLESSNESS [None]
  - HEADACHE [None]
